FAERS Safety Report 13494037 (Version 2)
Quarter: 2017Q2

REPORT INFORMATION
  Report Type: Spontaneous
  Country: US (occurrence: US)
  Receive Date: 20170427
  Receipt Date: 20170510
  Transmission Date: 20170830
  Serious: No
  Sender: FDA-Public Use
  Company Number: US-ROCHE-1924877

PATIENT
  Age: 45 Year
  Sex: Female

DRUGS (3)
  1. PREDNISONE. [Concomitant]
     Active Substance: PREDNISONE
     Route: 065
  2. RITUXIMAB [Suspect]
     Active Substance: RITUXIMAB
     Indication: INTERSTITIAL LUNG DISEASE
     Dosage: 2 RITUXIMAB INFUSIONS, 2 WEEKS APART
     Route: 042
  3. PREDNISONE. [Concomitant]
     Active Substance: PREDNISONE
     Indication: DYSPNOEA
     Route: 065

REACTIONS (1)
  - Tendonitis [Recovered/Resolved]
